FAERS Safety Report 22045699 (Version 1)
Quarter: 2023Q1

REPORT INFORMATION
  Report Type: Spontaneous
  Country: GR (occurrence: GR)
  Receive Date: 20230228
  Receipt Date: 20230228
  Transmission Date: 20230418
  Serious: Yes (Death, Other)
  Sender: FDA-Public Use
  Company Number: GR-GILEAD-2023-0618373

PATIENT
  Age: 47 Year
  Sex: Male
  Weight: 103 kg

DRUGS (11)
  1. TECARTUS [Suspect]
     Active Substance: BREXUCABTAGENE AUTOLEUCEL
     Indication: Mantle cell lymphoma
     Dosage: UNK
     Route: 065
     Dates: start: 20220517, end: 20220517
  2. GRANULOCYTE COLONY-STIMULATING FACTOR NOS [Concomitant]
     Active Substance: GRANULOCYTE COLONY-STIMULATING FACTOR NOS
  3. HYDROCORTISONE [Concomitant]
     Active Substance: HYDROCORTISONE
  4. KEPPRA [Concomitant]
     Active Substance: LEVETIRACETAM
  5. TYGACIL [Concomitant]
     Active Substance: TIGECYCLINE
  6. COLISTIM [Concomitant]
  7. VALTREX [Concomitant]
     Active Substance: VALACYCLOVIR HYDROCHLORIDE
  8. SULFAMETHOXAZOLE\TRIMETHOPRIM [Concomitant]
     Active Substance: SULFAMETHOXAZOLE\TRIMETHOPRIM
  9. TROFOCARD [Concomitant]
  10. LOPRESSOR [Concomitant]
     Active Substance: METOPROLOL TARTRATE
  11. CEFIXIME [Concomitant]
     Active Substance: CEFIXIME

REACTIONS (2)
  - Disease progression [Fatal]
  - Cytokine release syndrome [Recovered/Resolved]

NARRATIVE: CASE EVENT DATE: 20220529
